FAERS Safety Report 5831241-4 (Version None)
Quarter: 2008Q3

REPORT INFORMATION
  Report Type: 
  Country: None (occurrence: None)
  Receive Date: 20080801
  Receipt Date: 20080429
  Transmission Date: 20090109
  Serious: No
  Sender: FDA-Public Use
  Company Number: US-BRISTOL-MYERS SQUIBB COMPANY-14170120

PATIENT
  Age: 79 Year
  Sex: Female
  Weight: 62 kg

DRUGS (6)
  1. COUMADIN [Suspect]
     Indication: THROMBOSIS PROPHYLAXIS
     Dates: start: 20080301
  2. COREG [Concomitant]
  3. LANOXIN [Concomitant]
  4. DARVON [Concomitant]
  5. POTASSIUM CHLORIDE [Concomitant]
  6. DEMADEX [Concomitant]

REACTIONS (2)
  - MUSCULOSKELETAL STIFFNESS [None]
  - PAIN [None]
